FAERS Safety Report 7345996-3 (Version None)
Quarter: 2011Q1

REPORT INFORMATION
  Report Type: 
  Country: None (occurrence: None)
  Receive Date: 20110308
  Receipt Date: 20110308
  Transmission Date: 20110831
  Serious: Yes (Other)
  Sender: FDA-Public Use
  Company Number: None

PATIENT
  Age: 29 Year
  Sex: Female
  Weight: 86.1834 kg

DRUGS (2)
  1. LITHIUM CARBONATE [Suspect]
     Indication: ANXIETY
     Dosage: 450 MG ONCE DAILY PO
     Route: 048
     Dates: start: 20101123, end: 20110213
  2. LITHIUM CARBONATE [Suspect]
     Indication: DEPRESSION
     Dosage: 450 MG ONCE DAILY PO
     Route: 048
     Dates: start: 20101123, end: 20110213

REACTIONS (5)
  - IMPAIRED DRIVING ABILITY [None]
  - DEPRESSED MOOD [None]
  - TOOTH FRACTURE [None]
  - SOMNOLENCE [None]
  - CRYING [None]
